FAERS Safety Report 12331670 (Version 1)
Quarter: 2016Q2

REPORT INFORMATION
  Report Type: Spontaneous
  Country: FR (occurrence: FR)
  Receive Date: 20160504
  Receipt Date: 20160504
  Transmission Date: 20160815
  Serious: Yes (Hospitalization)
  Sender: FDA-Public Use
  Company Number: FR-PFIZER INC-2016237616

PATIENT
  Age: 11 Year
  Sex: Male
  Weight: 26 kg

DRUGS (3)
  1. ADVIL [Suspect]
     Active Substance: IBUPROFEN
     Indication: SINUSITIS
     Dosage: 200 MG, 3X/DAY
     Route: 048
     Dates: start: 20160404, end: 20160407
  2. PARACETAMOL [Concomitant]
     Active Substance: ACETAMINOPHEN
     Indication: SINUSITIS
  3. ADVIL [Suspect]
     Active Substance: IBUPROFEN
     Indication: HEADACHE

REACTIONS (4)
  - Empyema [Recovered/Resolved]
  - Condition aggravated [Recovered/Resolved]
  - Infection [Recovered/Resolved]
  - Thrombophlebitis septic [Recovered/Resolved]

NARRATIVE: CASE EVENT DATE: 20160408
